FAERS Safety Report 23806366 (Version 4)
Quarter: 2024Q3

REPORT INFORMATION
  Report Type: Spontaneous
  Country: DE (occurrence: DE)
  Receive Date: 20240502
  Receipt Date: 20240911
  Transmission Date: 20241016
  Serious: Yes (Other)
  Sender: BOEHRINGER INGELHEIM
  Company Number: DE-BoehringerIngelheim-2024-BI-024858

PATIENT
  Age: 86 Year
  Sex: Male
  Weight: 116 kg

DRUGS (21)
  1. JARDIANCE [Suspect]
     Active Substance: EMPAGLIFLOZIN
     Indication: Diabetes mellitus
     Dates: start: 202310, end: 202403
  2. HYDROCHLOROTHIAZIDE [Suspect]
     Active Substance: HYDROCHLOROTHIAZIDE
     Indication: Product used for unknown indication
  3. TORSEMIDE [Suspect]
     Active Substance: TORSEMIDE
     Indication: Cardiac failure
     Dosage: DAILY DOSE: 150
     Route: 048
  4. TORSEMIDE [Suspect]
     Active Substance: TORSEMIDE
     Indication: Hypertension
  5. Torasemid - 1A Pharma 50 mg Tabletten [Concomitant]
     Indication: Fluid retention
     Dosage: 2-1-0-0
  6. ASPIRIN [Concomitant]
     Active Substance: ASPIRIN
     Indication: Drug therapy
  7. Delix 5 mg Tabletten [Concomitant]
     Indication: Hypertension
     Dosage: DOSE- 0.5 TAB.?REDUCED ON 14-FEB-2024 DUE TO HYPOTENSION
  8. Beloc Zok Mite 47.5 mg [Concomitant]
     Indication: Hypertension
  9. EplerenHexal 50 mg Filmtabletten [Concomitant]
     Indication: Product used for unknown indication
  10. Rosuzet 20 mg/10 mg Filmtabletten [Concomitant]
     Indication: Product used for unknown indication
  11. Adenuric 80 mg [Concomitant]
     Indication: Blood uric acid abnormal
  12. Pentalong 50 mg [Concomitant]
     Indication: Product used for unknown indication
  13. LINOLA FETT [Concomitant]
     Indication: Dry skin
  14. Lantus 100 E/ml SoloStar Fertigpen [Concomitant]
     Indication: Diabetes mellitus
  15. NOVORAPID [Concomitant]
     Active Substance: INSULIN ASPART
     Indication: Diabetes mellitus
     Dosage: 22IU-22IU-24IU AND AT 4:00 A.M. 5 IRE
  16. Januvia 50 mg Filmtabletten [Concomitant]
     Indication: Product used for unknown indication
  17. Milgamma 300 mg Filmtabletten [Concomitant]
     Indication: Product used for unknown indication
  18. Kalinor [Concomitant]
     Indication: Product used for unknown indication
  19. Pantoprazol-1A Pharma 20 mg magensaftres. Tabl. [Concomitant]
     Indication: Prophylaxis
  20. Novalgin [Concomitant]
     Indication: Pain
     Dosage: 3X1 / MAX. 4X1
  21. POLYETHYLENE GLYCOL 3350\POTASSIUM CHLORIDE\SODIUM BICARBONATE\SODIUM [Concomitant]
     Active Substance: POLYETHYLENE GLYCOL 3350\POTASSIUM CHLORIDE\SODIUM BICARBONATE\SODIUM CHLORIDE
     Indication: Constipation

REACTIONS (2)
  - Blood urine present [Recovered/Resolved]
  - Oliguria [Recovered/Resolved]

NARRATIVE: CASE EVENT DATE: 20240325
